FAERS Safety Report 16731559 (Version 4)
Quarter: 2020Q2

REPORT INFORMATION
  Report Type: Spontaneous
  Country: US (occurrence: US)
  Receive Date: 20190822
  Receipt Date: 20200515
  Transmission Date: 20200713
  Serious: No
  Sender: FDA-Public Use
  Company Number: US-SA-2019SA230322

PATIENT
  Age: 79 Year
  Sex: Male

DRUGS (2)
  1. DUPIXENT [Suspect]
     Active Substance: DUPILUMAB
     Indication: ASTHMA
     Dosage: 300 MG, QOW
     Route: 058
     Dates: start: 20190529
  2. DUPIXENT [Suspect]
     Active Substance: DUPILUMAB
     Indication: DERMATITIS ATOPIC

REACTIONS (10)
  - Gait disturbance [Unknown]
  - Nasal congestion [Unknown]
  - Headache [Recovering/Resolving]
  - Lethargy [Unknown]
  - Peripheral swelling [Recovering/Resolving]
  - Sneezing [Unknown]
  - Fatigue [Unknown]
  - Arthritis [Recovering/Resolving]
  - Arthropathy [Unknown]
  - Ocular hyperaemia [Unknown]

NARRATIVE: CASE EVENT DATE: 2019
